FAERS Safety Report 21299374 (Version 1)
Quarter: 2022Q3

REPORT INFORMATION
  Report Type: Spontaneous
  Country: US (occurrence: US)
  Receive Date: 20220906
  Receipt Date: 20220906
  Transmission Date: 20221027
  Serious: Yes (Other)
  Sender: FDA-Public Use
  Company Number: US-BRISTOL-MYERS SQUIBB COMPANY-2022-098659

PATIENT
  Age: 61 Year
  Sex: Female

DRUGS (2)
  1. REVLIMID [Suspect]
     Active Substance: LENALIDOMIDE
     Indication: Swelling
     Route: 048
     Dates: start: 20220716
  2. REVLIMID [Suspect]
     Active Substance: LENALIDOMIDE
     Indication: Neck mass

REACTIONS (1)
  - Malignant neoplasm progression [Unknown]
